FAERS Safety Report 4307764-6 (Version None)
Quarter: 2004Q1

REPORT INFORMATION
  Report Type: 
  Country: None (occurrence: None)
  Receive Date: 20040225
  Receipt Date: 20030205
  Transmission Date: 20041129
  Serious: Yes (Disabling)
  Sender: FDA-Public Use
  Company Number: WAES 0302USA00681

PATIENT
  Age: 73 Year
  Sex: Female

DRUGS (8)
  1. ZOCOR [Suspect]
     Dosage: 20 MG/DAILY/PO
     Route: 048
     Dates: start: 20021002, end: 20021027
  2. DIOVAN HCT [Concomitant]
  3. FLONASE [Concomitant]
  4. MIACALCIN [Concomitant]
  5. ORTHO DIENESTROL CREAM [Concomitant]
  6. PREMARIN [Concomitant]
  7. SYNTHROID [Concomitant]
  8. CLONIDINE [Concomitant]

REACTIONS (4)
  - BACK PAIN [None]
  - MUSCLE CRAMP [None]
  - MYALGIA [None]
  - PAIN IN EXTREMITY [None]
